FAERS Safety Report 8581942-2 (Version None)
Quarter: 2012Q3

REPORT INFORMATION
  Report Type: 
  Country: None (occurrence: None)
  Receive Date: 20120809
  Receipt Date: 20120611
  Transmission Date: 20120928
  Serious: Yes (Other)
  Sender: FDA-Public Use
  Company Number: US-NOVOPROD-349946

PATIENT
  Age: 55 Year
  Sex: Male
  Weight: 105.3 kg

DRUGS (1)
  1. VICTOZA [Suspect]
     Indication: TYPE 2 DIABETES MELLITUS
     Dosage: 1.8 MG, QD
     Route: 058
     Dates: start: 20120105

REACTIONS (2)
  - LIPASE INCREASED [None]
  - AMYLASE INCREASED [None]
